FAERS Safety Report 12158298 (Version 1)
Quarter: 2016Q1

REPORT INFORMATION
  Report Type: Spontaneous
  Country: US (occurrence: US)
  Receive Date: 20160308
  Receipt Date: 20160308
  Transmission Date: 20160526
  Serious: No
  Sender: FDA-Public Use
  Company Number: US-JNJFOC-20141104533

PATIENT
  Age: 83 Year
  Sex: Female
  Weight: 75 kg

DRUGS (7)
  1. LOSARTAN. [Concomitant]
     Active Substance: LOSARTAN
     Indication: HYPERTENSION
  2. ASPIRIN. [Concomitant]
     Active Substance: ASPIRIN
  3. NEXIUM [Concomitant]
     Active Substance: ESOMEPRAZOLE MAGNESIUM
  4. METOPROLOL. [Concomitant]
     Active Substance: METOPROLOL
  5. ALLOPURINOL. [Concomitant]
     Active Substance: ALLOPURINOL
  6. CRESTOR [Concomitant]
     Active Substance: ROSUVASTATIN CALCIUM
  7. IMBRUVICA [Suspect]
     Active Substance: IBRUTINIB
     Indication: CHRONIC LYMPHOCYTIC LEUKAEMIA
     Route: 065
     Dates: start: 20140920

REACTIONS (6)
  - Sciatic nerve injury [Recovering/Resolving]
  - White blood cell count increased [Recovering/Resolving]
  - Muscle spasms [Not Recovered/Not Resolved]
  - Back injury [Not Recovered/Not Resolved]
  - Fall [Recovering/Resolving]
  - Pain [Not Recovered/Not Resolved]

NARRATIVE: CASE EVENT DATE: 201410
